FAERS Safety Report 23730576 (Version 2)
Quarter: 2024Q2

REPORT INFORMATION
  Report Type: Spontaneous
  Country: FR (occurrence: FR)
  Receive Date: 20240411
  Receipt Date: 20240424
  Transmission Date: 20240716
  Serious: Yes (Hospitalization)
  Sender: FDA-Public Use
  Company Number: FR-TEVA-VS-3180282

PATIENT
  Age: 59 Year
  Sex: Female

DRUGS (4)
  1. RISPERIDONE [Suspect]
     Active Substance: RISPERIDONE
     Indication: Dementia with Lewy bodies
     Route: 065
  2. CLOZAPINE [Suspect]
     Active Substance: CLOZAPINE
     Indication: Dementia with Lewy bodies
     Dosage: SLOW TITRATION
     Route: 065
  3. QUETIAPINE [Suspect]
     Active Substance: QUETIAPINE
     Indication: Dementia with Lewy bodies
     Dosage: EXTENDED-RELEASE, WHICH WAS TITRATED UP TO 550MG; HIGHER DOSES
     Route: 065
  4. AMISULPRIDE [Suspect]
     Active Substance: AMISULPRIDE
     Indication: Dementia with Lewy bodies
     Dosage: TITRATED UP TO 400 MG DAILY
     Route: 065

REACTIONS (6)
  - Motor dysfunction [Recovering/Resolving]
  - Parkinsonism [Recovering/Resolving]
  - Drug intolerance [Unknown]
  - Myocarditis [Unknown]
  - Drug ineffective [Unknown]
  - Somnolence [Recovering/Resolving]
